FAERS Safety Report 25809192 (Version 1)
Quarter: 2025Q3

REPORT INFORMATION
  Report Type: Spontaneous
  Country: EU (occurrence: EU)
  Receive Date: 20250916
  Receipt Date: 20250916
  Transmission Date: 20251020
  Serious: Yes (Other)
  Sender: GILEAD
  Company Number: EU-PEI-202500019358

PATIENT
  Age: 67 Year
  Sex: Male

DRUGS (1)
  1. TECARTUS [Suspect]
     Active Substance: BREXUCABTAGENE AUTOLEUCEL
     Indication: Mantle cell lymphoma recurrent
     Route: 065
     Dates: start: 20210823

REACTIONS (1)
  - Anal squamous cell carcinoma [Recovered/Resolved]

NARRATIVE: CASE EVENT DATE: 20250407
